FAERS Safety Report 6715190-5 (Version None)
Quarter: 2010Q2

REPORT INFORMATION
  Report Type: 
  Country: None (occurrence: None)
  Receive Date: 20100507
  Receipt Date: 20100503
  Transmission Date: 20101027
  Serious: Yes (Other)
  Sender: FDA-Public Use
  Company Number: CHPA2010US07726

PATIENT
  Age: 69 Year
  Sex: Female
  Weight: 77.098 kg

DRUGS (2)
  1. PREVACID 24 HR [Suspect]
     Indication: GASTROOESOPHAGEAL REFLUX DISEASE
     Dosage: 30 MG, BID
     Route: 048
  2. MAALOX ANTACID/ANTIGAS MAX QDTABS WILDB (NCH) [Suspect]
     Indication: DYSPEPSIA
     Dosage: 2 DF, TID
     Route: 048
     Dates: start: 20100428

REACTIONS (1)
  - BLOOD GLUCOSE INCREASED [None]
